FAERS Safety Report 5665329-8 (Version None)
Quarter: 2008Q1

REPORT INFORMATION
  Report Type: 
  Country: None (occurrence: None)
  Receive Date: 20080314
  Receipt Date: 20071210
  Transmission Date: 20080703
  Serious: No
  Sender: FDA-Public Use
  Company Number: US-ABBOTT-07P-163-0424303-00

PATIENT
  Sex: Female
  Weight: 50.848 kg

DRUGS (4)
  1. HUMIRA [Suspect]
     Indication: RHEUMATOID ARTHRITIS
     Route: 058
     Dates: start: 20030101, end: 20070201
  2. HUMIRA [Suspect]
     Route: 058
     Dates: start: 20070301, end: 20071031
  3. HUMIRA [Suspect]
     Route: 058
     Dates: start: 20071203
  4. PHENOBARBITAL TAB [Concomitant]
     Indication: CONVULSION
     Route: 048

REACTIONS (2)
  - ARTHROPATHY [None]
  - INFECTION [None]
